FAERS Safety Report 11336317 (Version 1)
Quarter: 2015Q3

REPORT INFORMATION
  Report Type: Spontaneous
  Country: BR (occurrence: BR)
  Receive Date: 20150804
  Receipt Date: 20150804
  Transmission Date: 20151125
  Serious: Yes (Death, Hospitalization)
  Sender: FDA-Public Use
  Company Number: BR-B.I. PHARMACEUTICALS,INC./RIDGEFIELD-2015-BI-41643BR

PATIENT
  Age: 91 Year
  Sex: Female
  Weight: 50 kg

DRUGS (9)
  1. OLMETEC [Concomitant]
     Active Substance: OLMESARTAN MEDOXOMIL
     Indication: HYPERTENSION
     Dosage: 20 MG
     Route: 048
     Dates: start: 2012, end: 20150714
  2. SPIRIVA [Suspect]
     Active Substance: TIOTROPIUM BROMIDE MONOHYDRATE
     Indication: DYSPNOEA
     Dosage: 2 PUF
     Route: 055
     Dates: start: 2014, end: 20150714
  3. AMIODARONA [Concomitant]
     Active Substance: AMIODARONE
     Indication: CARDIAC MURMUR
     Dosage: 100 MG
     Route: 048
     Dates: start: 2003, end: 20150714
  4. OMEPRAZOL [Concomitant]
     Active Substance: OMEPRAZOLE
     Indication: PROPHYLAXIS AGAINST GASTROINTESTINAL ULCER
     Route: 048
     Dates: start: 2010, end: 20150714
  5. FORASEQ [Concomitant]
     Active Substance: BUDESONIDE\FORMOTEROL FUMARATE
     Indication: DYSPNOEA
     Route: 055
     Dates: start: 2013, end: 20150714
  6. RIVOTRIL [Concomitant]
     Active Substance: CLONAZEPAM
     Indication: INSOMNIA
     Dosage: 0.5 MG
     Route: 048
     Dates: start: 1995, end: 20150714
  7. DAXAS [Concomitant]
     Active Substance: ROFLUMILAST
     Indication: HYPERTENSION
     Route: 048
     Dates: start: 2012, end: 20150714
  8. AMIODARONA [Concomitant]
     Active Substance: AMIODARONE
     Indication: CARDIAC FAILURE
  9. AKINETON [Concomitant]
     Active Substance: BIPERIDEN HYDROCHLORIDE
     Indication: PARKINSON^S DISEASE
     Route: 048
     Dates: start: 201501, end: 20150714

REACTIONS (4)
  - Multi-organ failure [Fatal]
  - Cardiac arrest [Fatal]
  - Syncope [Not Recovered/Not Resolved]
  - Pneumonia [Not Recovered/Not Resolved]

NARRATIVE: CASE EVENT DATE: 201501
